FAERS Safety Report 5410350-8 (Version None)
Quarter: 2007Q3

REPORT INFORMATION
  Report Type: 
  Country: None (occurrence: None)
  Receive Date: 20070808
  Receipt Date: 20070723
  Transmission Date: 20080115
  Serious: Yes (Other)
  Sender: FDA-Public Use
  Company Number: VER_00067_2007

PATIENT
  Sex: Female
  Weight: 56.6996 kg

DRUGS (3)
  1. EPINEPHRINE [Suspect]
     Indication: ANAPHYLACTIC REACTION
     Dosage: (0.3 MG INTRAMUSCULAR/SUBCUTANEOUS)
     Route: 058
  2. VENTOLIN [Concomitant]
  3. PULMICORT [Concomitant]

REACTIONS (2)
  - DEVICE FAILURE [None]
  - PHARMACEUTICAL PRODUCT COMPLAINT [None]
